FAERS Safety Report 11009527 (Version 3)
Quarter: 2015Q2

REPORT INFORMATION
  Report Type: Spontaneous
  Country: JP (occurrence: JP)
  Receive Date: 20150410
  Receipt Date: 20150504
  Transmission Date: 20150821
  Serious: Yes (Hospitalization)
  Sender: FDA-Public Use
  Company Number: PHJP2015JP004665

PATIENT
  Sex: Male

DRUGS (4)
  1. EXELON PATCH [Suspect]
     Active Substance: RIVASTIGMINE
     Dosage: 4.6MG/24HR (9 MG RIVASTIGMINE BASE, PATCH5 CM2)
     Route: 062
  2. EXELON PATCH [Suspect]
     Active Substance: RIVASTIGMINE
     Indication: DEMENTIA
     Dosage: 9.5 MG/ 24HR (18 MG RIVASTIGMINE BASE/ PATCH 10 CM2)
     Route: 062
  3. RIVASTACH [Suspect]
     Active Substance: RIVASTIGMINE
     Indication: PRODUCT USED FOR UNKNOWN INDICATION
     Dosage: 6.9 MG/ 24HR (13.5 MG RIVASTIGMINE BASE, PATCH 7.5 CM2)
     Route: 062
  4. EXELON PATCH [Suspect]
     Active Substance: RIVASTIGMINE
     Dosage: 6.9 MG/ 24HR (13.5 MG RIVASTIGMINE BASE, PATCH 7.5 CM2)
     Route: 062

REACTIONS (2)
  - Nausea [Recovered/Resolved]
  - Angina pectoris [Unknown]

NARRATIVE: CASE EVENT DATE: 20150225
